FAERS Safety Report 24025685 (Version 1)
Quarter: 2024Q2

REPORT INFORMATION
  Report Type: Spontaneous
  Country: CN (occurrence: CN)
  Receive Date: 20240628
  Receipt Date: 20240628
  Transmission Date: 20240716
  Serious: No
  Sender: FDA-Public Use
  Company Number: CN-ROCHE-3387404

PATIENT
  Age: 51 Year
  Sex: Male

DRUGS (1)
  1. ALECTINIB [Suspect]
     Active Substance: ALECTINIB
     Indication: Lung adenocarcinoma
     Dosage: FOR THREE CYCLES (12 WEEKS), 30 WEEKS
     Route: 048
     Dates: start: 20210715

REACTIONS (2)
  - Off label use [Unknown]
  - Anaemia [Unknown]
